FAERS Safety Report 16161920 (Version 3)
Quarter: 2019Q2

REPORT INFORMATION
  Report Type: Report from Study
  Country: JP (occurrence: JP)
  Receive Date: 20190405
  Receipt Date: 20190606
  Transmission Date: 20190711
  Serious: Yes (Death, Hospitalization, Other)
  Sender: FDA-Public Use
  Company Number: JP-BRISTOL-MYERS SQUIBB COMPANY-BMS-2019-032913

PATIENT
  Age: 83 Year
  Sex: Female
  Weight: 33.4 kg

DRUGS (1)
  1. NIVOLUMAB [Suspect]
     Active Substance: NIVOLUMAB
     Indication: GASTRIC CANCER
     Dosage: 3 MILLIGRAM/KILOGRAM
     Route: 041
     Dates: start: 20180731, end: 20181106

REACTIONS (4)
  - Urinary tract infection [Recovering/Resolving]
  - Hydronephrosis [Unknown]
  - Malignant neoplasm progression [Fatal]
  - Bacteraemia [Recovering/Resolving]

NARRATIVE: CASE EVENT DATE: 20180813
